FAERS Safety Report 24299585 (Version 1)
Quarter: 2024Q3

REPORT INFORMATION
  Report Type: Spontaneous
  Country: LB (occurrence: LB)
  Receive Date: 20240909
  Receipt Date: 20240909
  Transmission Date: 20241017
  Serious: Yes (Other)
  Sender: RANBAXY
  Company Number: LB-SUN PHARMACEUTICAL INDUSTRIES LTD-2024R1-466683

PATIENT
  Age: 64 Year
  Sex: Male

DRUGS (4)
  1. DEFLAZACORT [Suspect]
     Active Substance: DEFLAZACORT
     Indication: Myositis
     Dosage: 3 MILLIGRAM, DAILY
     Route: 065
  2. HYDROXYCHLOROQUINE [Suspect]
     Active Substance: HYDROXYCHLOROQUINE
     Indication: Myositis
     Dosage: 200 MILLIGRAM, DAILY
     Route: 065
  3. MYCOPHENOLATE MOFETIL [Suspect]
     Active Substance: MYCOPHENOLATE MOFETIL
     Indication: Myositis
     Dosage: 1 GRAM, BID
     Route: 065
  4. CYCLOSPORINE [Suspect]
     Active Substance: CYCLOSPORINE
     Indication: Myositis
     Dosage: 100 MILLIGRAM, DAILY
     Route: 065

REACTIONS (3)
  - Morphoea [Unknown]
  - Therapeutic response decreased [Unknown]
  - Skin lesion [Unknown]
